FAERS Safety Report 7161341-0 (Version None)
Quarter: 2010Q4

REPORT INFORMATION
  Report Type: 
  Country: None (occurrence: None)
  Receive Date: 20101215
  Receipt Date: 20101213
  Transmission Date: 20110411
  Serious: Yes (Other)
  Sender: FDA-Public Use
  Company Number: DE-GENZYME-MOZO-1000414

PATIENT
  Sex: Male
  Weight: 77 kg

DRUGS (7)
  1. MOZOBIL [Suspect]
     Indication: HAEMATOPOIETIC STEM CELL MOBILISATION
     Dosage: 0.24 MG/KG, UNK
     Route: 058
     Dates: start: 20100912, end: 20100913
  2. MOZOBIL [Suspect]
     Indication: NON-HODGKIN'S LYMPHOMA RECURRENT
  3. GRANULOCYTE COLONY STIMULATING FACTOR [Concomitant]
     Indication: HAEMATOPOIETIC STEM CELL MOBILISATION
     Route: 065
  4. CARMEN [Concomitant]
     Indication: HYPERTENSION
     Dosage: 10 MG, UNK
     Route: 065
  5. TOREM [Concomitant]
     Indication: HYPERTENSION
     Dosage: 10 MG, UNK
     Route: 065
  6. ZYPREXA [Concomitant]
     Indication: DEPRESSION
     Dosage: 2.5 UNK, UNK
  7. TAVOR [Concomitant]
     Indication: PRODUCT USED FOR UNKNOWN INDICATION
     Dosage: 1 MG, UNK
     Route: 065

REACTIONS (1)
  - DRUG INEFFECTIVE [None]
